FAERS Safety Report 17745515 (Version 2)
Quarter: 2020Q2

REPORT INFORMATION
  Report Type: Spontaneous
  Country: IT (occurrence: IT)
  Receive Date: 20200505
  Receipt Date: 20200612
  Transmission Date: 20200714
  Serious: Yes (Hospitalization)
  Sender: FDA-Public Use
  Company Number: NVSC2020IT120656

PATIENT
  Age: 33 Year
  Sex: Male
  Weight: 75 kg

DRUGS (3)
  1. LIDOCAINE HYDROCHLORIDE. [Suspect]
     Active Substance: LIDOCAINE HYDROCHLORIDE
     Indication: BIOPSY SKIN
     Dosage: UNK
     Route: 065
     Dates: start: 20200110, end: 20200110
  2. CLINDAMYCIN. [Suspect]
     Active Substance: CLINDAMYCIN
     Indication: PERIORBITAL CELLULITIS
     Dosage: 1200 DF, QD
     Route: 048
     Dates: start: 20200103, end: 20200104
  3. CLINDAMYCIN PHOSPHATE. [Suspect]
     Active Substance: CLINDAMYCIN PHOSPHATE
     Indication: PERIORBITAL CELLULITIS
     Dosage: 1200 MG, QD
     Route: 042
     Dates: start: 20200105, end: 20200110

REACTIONS (3)
  - Pruritus [Recovered/Resolved]
  - Rash papular [Recovered/Resolved]
  - Rash [Recovered/Resolved]

NARRATIVE: CASE EVENT DATE: 20200111
